FAERS Safety Report 25747674 (Version 2)
Quarter: 2025Q4

REPORT INFORMATION
  Report Type: Report from Study
  Country: EU (occurrence: EU)
  Receive Date: 20250901
  Receipt Date: 20251001
  Transmission Date: 20260117
  Serious: Yes (Other)
  Sender: ABBVIE
  Company Number: EU-ABBVIE-6429017

PATIENT
  Age: 74 Year
  Sex: Female

DRUGS (3)
  1. CARBIDOPA\LEVODOPA [Suspect]
     Active Substance: CARBIDOPA\LEVODOPA
     Indication: Parkinson^s disease
     Dosage: LAST ADMIN DATE:2025?INCREASED DOSE BY 0.2
     Route: 050
  2. CARBIDOPA\LEVODOPA [Suspect]
     Active Substance: CARBIDOPA\LEVODOPA
     Dosage: CONTINUOUS DOSE 5.4
     Route: 050
     Dates: end: 20250908
  3. CARBIDOPA\LEVODOPA [Suspect]
     Active Substance: CARBIDOPA\LEVODOPA
     Dosage: DOSE DECREASED 0.1 EVERY OTHER DAY
     Route: 050

REACTIONS (6)
  - Seizure [Unknown]
  - Dyskinesia [Unknown]
  - Weight decreased [Unknown]
  - Illness [Unknown]
  - Musculoskeletal stiffness [Unknown]
  - Epilepsy [Unknown]

NARRATIVE: CASE EVENT DATE: 20250101
